FAERS Safety Report 16420165 (Version 1)
Quarter: 2019Q2

REPORT INFORMATION
  Report Type: Spontaneous
  Country: US (occurrence: US)
  Receive Date: 20190612
  Receipt Date: 20190612
  Transmission Date: 20190711
  Serious: Yes (Other)
  Sender: FDA-Public Use
  Company Number: US-ENDO PHARMACEUTICALS INC-2019-105443

PATIENT
  Age: 53 Year
  Sex: Female

DRUGS (1)
  1. VASOSTRICT [Suspect]
     Active Substance: VASOPRESSIN
     Indication: HYPOTENSION
     Dosage: UNK UNKNOWN, UNKNOWN
     Route: 065

REACTIONS (2)
  - Nephrogenic diabetes insipidus [Recovered/Resolved]
  - Hypernatraemia [Recovered/Resolved]
